FAERS Safety Report 14761655 (Version 1)
Quarter: 2018Q2

REPORT INFORMATION
  Report Type: Spontaneous
  Country: US (occurrence: US)
  Receive Date: 20180416
  Receipt Date: 20180416
  Transmission Date: 20180711
  Serious: No
  Sender: FDA-Public Use
  Company Number: US-BION-006214

PATIENT
  Age: 83 Year
  Sex: Male
  Weight: 59 kg

DRUGS (7)
  1. BIOTIN [Concomitant]
     Active Substance: BIOTIN
  2. TAMSULOSIN/TAMSULOSIN HYDROCHLORIDE [Concomitant]
  3. ESTER C [Concomitant]
  4. ZINC OXIDE. [Concomitant]
     Active Substance: ZINC OXIDE
  5. ALEVE [Suspect]
     Active Substance: NAPROXEN SODIUM
     Indication: PAIN
     Route: 048
  6. LOSARTAN. [Concomitant]
     Active Substance: LOSARTAN
  7. LUTEIN [Concomitant]
     Active Substance: LUTEIN

REACTIONS (1)
  - Dyspepsia [Recovered/Resolved]
